FAERS Safety Report 8780573 (Version 1)
Quarter: 2012Q4

REPORT INFORMATION
  Report Type: 
  Country: US (occurrence: US)
  Receive Date: 20120913
  Receipt Date: 20120913
  Transmission Date: 20130627
  Serious: No
  Sender: FDA-Public Use
  Company Number: US-PFIZER INC-2012223543

PATIENT
  Sex: Male

DRUGS (2)
  1. AMLODIPINE BESILATE [Suspect]
     Indication: HYPERTENSION
     Dosage: 2.5 mg, UNK
  2. FISH OIL [Suspect]
     Dosage: UNK

REACTIONS (4)
  - Drug ineffective [Unknown]
  - Rash generalised [Recovered/Resolved]
  - Blood potassium decreased [Unknown]
  - Drug hypersensitivity [Unknown]
